FAERS Safety Report 6347943-X (Version None)
Quarter: 2009Q3

REPORT INFORMATION
  Report Type: 
  Country: None (occurrence: None)
  Receive Date: 20090910
  Receipt Date: 20090908
  Transmission Date: 20100115
  Serious: Yes (Death, Other)
  Sender: FDA-Public Use
  Company Number: PHEH2009US06148

PATIENT
  Sex: Female
  Weight: 66 kg

DRUGS (5)
  1. GLEEVEC [Suspect]
     Indication: CHRONIC MYELOID LEUKAEMIA
     Dosage: 200 MG DAILY
     Route: 048
     Dates: start: 20090330, end: 20090606
  2. CARAFATE [Concomitant]
     Indication: DYSPEPSIA
     Dosage: 1 G, QID
     Route: 048
  3. PROTONIX [Concomitant]
     Indication: DYSPEPSIA
     Dosage: 40 MG, BID
     Route: 048
  4. HYDROCHLOROTHIAZIDE [Concomitant]
     Indication: HYPERTENSION
     Dosage: 50 MG, QD
     Route: 048
  5. K-DUR [Concomitant]
     Indication: HYPOKALAEMIA
     Dosage: 20 MEQ, QD
     Route: 048

REACTIONS (5)
  - ABDOMINAL PAIN [None]
  - AORTIC THROMBOSIS [None]
  - INTESTINAL ISCHAEMIA [None]
  - INTESTINAL PERFORATION [None]
  - MESENTERIC ARTERY THROMBOSIS [None]
